FAERS Safety Report 5853382-8 (Version None)
Quarter: 2008Q3

REPORT INFORMATION
  Report Type: 
  Country: None (occurrence: None)
  Receive Date: 20080821
  Receipt Date: 20080815
  Transmission Date: 20090109
  Serious: Yes (Other)
  Sender: FDA-Public Use
  Company Number: JP-PFIZER INC-2008052747

PATIENT
  Age: 10 Year
  Sex: Male

DRUGS (2)
  1. ATARAX [Suspect]
     Indication: ANAESTHETIC PREMEDICATION
     Dosage: DAILY DOSE:50MG
     Route: 030
     Dates: start: 20080612, end: 20080612
  2. ANAESTHETICS [Concomitant]

REACTIONS (1)
  - INJECTION SITE NECROSIS [None]
